FAERS Safety Report 24580637 (Version 1)
Quarter: 2024Q4

REPORT INFORMATION
  Report Type: Spontaneous
  Country: AT (occurrence: AT)
  Receive Date: 20241105
  Receipt Date: 20241105
  Transmission Date: 20250114
  Serious: Yes (Other)
  Sender: FRESENIUS KABI
  Company Number: AT-009507513-2410AUT010443

PATIENT
  Age: 75 Year

DRUGS (6)
  1. OXALIPLATIN [Suspect]
     Active Substance: OXALIPLATIN
     Indication: Oesophageal cancer metastatic
     Dosage: UNK
  2. PEMBROLIZUMAB [Suspect]
     Active Substance: PEMBROLIZUMAB
     Indication: Oesophageal cancer metastatic
     Dosage: 200 MILLIGRAM?FOA: SOLUTION FOR INJECTION ?ROA: UNKNOWN
  3. PEMBROLIZUMAB [Suspect]
     Active Substance: PEMBROLIZUMAB
     Dosage: 400 MILLIGRAM, EVERY 6 WEEKS?FOA: SOLUTION FOR INJECTION ?ROA: UNKNOWN
     Dates: start: 2024
  4. TRASTUZUMAB [Suspect]
     Active Substance: TRASTUZUMAB
     Indication: Oesophageal cancer metastatic
     Dosage: 8 MILLIGRAM/KILOGRAM?FOA: UNKNOWN?ROA: UNKNOWN
  5. TRASTUZUMAB [Suspect]
     Active Substance: TRASTUZUMAB
     Dosage: 4 MILLIGRAM/KILOGRAM, QOW?FOA: UNKNOWN?ROA: UNKNOWN
     Dates: start: 2024
  6. FLUOROURACIL SODIUM [Suspect]
     Active Substance: FLUOROURACIL SODIUM
     Indication: Oesophageal cancer metastatic
     Dosage: UNK

REACTIONS (7)
  - Polyneuropathy [Unknown]
  - Immune-mediated gastrointestinal disorder [Recovered/Resolved]
  - Thrombocytopenia [Unknown]
  - Diarrhoea [Recovered/Resolved]
  - Night sweats [Unknown]
  - Fatigue [Unknown]
  - Product use issue [Unknown]

NARRATIVE: CASE EVENT DATE: 20240101
